FAERS Safety Report 5293302-0 (Version None)
Quarter: 2007Q2

REPORT INFORMATION
  Report Type: 
  Country: None (occurrence: None)
  Receive Date: 20070411
  Receipt Date: 20070404
  Transmission Date: 20071010
  Serious: Yes (Hospitalization, Other)
  Sender: FDA-Public Use
  Company Number: US-BAYER-200710245BWH

PATIENT
  Age: 67 Year
  Sex: Male
  Weight: 91 kg

DRUGS (11)
  1. LEVITRA [Suspect]
     Indication: ERECTILE DYSFUNCTION
     Dosage: AS USED: 5 MG  UNIT DOSE: 20 MG
     Route: 048
  2. TAMSULOSIN HCL [Concomitant]
  3. BACLOFEN [Concomitant]
  4. GLATIRAMER ACETATE [Concomitant]
  5. ASPIRIN [Concomitant]
  6. LANOXIN [Concomitant]
  7. AMIDARONE HYDROCHLORIDE [Concomitant]
  8. AMANTADINE HCL [Concomitant]
  9. FOLIC ACID [Concomitant]
  10. MULTIVITS [Concomitant]
  11. VIT B12 [Concomitant]

REACTIONS (4)
  - CARDIAC FIBRILLATION [None]
  - CHEST PAIN [None]
  - HEART RATE INCREASED [None]
  - MUSCULAR WEAKNESS [None]
